FAERS Safety Report 5317211-3 (Version None)
Quarter: 2007Q2

REPORT INFORMATION
  Report Type: 
  Country: None (occurrence: None)
  Receive Date: 20070504
  Receipt Date: 20070427
  Transmission Date: 20071010
  Serious: Yes (Other)
  Sender: FDA-Public Use
  Company Number: JP-PFIZER INC-2007030985

PATIENT
  Sex: Male

DRUGS (8)
  1. ZOLOFT [Suspect]
     Indication: DEPRESSION
     Route: 048
     Dates: start: 20070123
  2. TETRAMIDE [Suspect]
     Indication: INSOMNIA
     Route: 048
     Dates: start: 20040622
  3. DORAL [Suspect]
     Indication: INSOMNIA
     Route: 048
     Dates: start: 20020927
  4. ISOMYTAL [Concomitant]
     Route: 048
     Dates: start: 20020927
  5. DOGMATYL [Concomitant]
  6. LIPOVAS ^BANYU^ [Concomitant]
     Route: 048
  7. METLIGINE [Concomitant]
     Route: 048
  8. DEPAS [Concomitant]
     Route: 048

REACTIONS (2)
  - DISTURBANCE IN ATTENTION [None]
  - ROAD TRAFFIC ACCIDENT [None]
